FAERS Safety Report 8522502 (Version 3)
Quarter: 2014Q1

REPORT INFORMATION
  Report Type: Spontaneous
  Country: AR (occurrence: AR)
  Receive Date: 20120319
  Receipt Date: 20140307
  Transmission Date: 20141002
  Serious: Yes (Other)
  Sender: FDA-Public Use
  Company Number: AR-AMGEN-ARGSP2012015720

PATIENT
  Age: 77 Year
  Sex: Female

DRUGS (1)
  1. ENBREL [Suspect]
     Indication: RHEUMATOID ARTHRITIS
     Dosage: 50 MG, WEEKLY
     Route: 065
     Dates: start: 20070207

REACTIONS (7)
  - Rheumatoid arthritis [Unknown]
  - Finger deformity [Unknown]
  - Rheumatoid factor increased [Unknown]
  - Nodule [Recovered/Resolved]
  - Red blood cell count increased [Not Recovered/Not Resolved]
  - Rash pustular [Unknown]
  - Localised infection [Not Recovered/Not Resolved]
